FAERS Safety Report 4665248-X (Version None)
Quarter: 2005Q2

REPORT INFORMATION
  Report Type: 
  Country: None (occurrence: None)
  Receive Date: 20050518
  Receipt Date: 20041008
  Transmission Date: 20051028
  Serious: Yes (Life-Threatening, Hospitalization, Disabling, Other)
  Sender: FDA-Public Use
  Company Number: US-MERCK-0410USA01126

PATIENT
  Age: 27 Year
  Sex: Male

DRUGS (2)
  1. VIOXX [Suspect]
     Indication: ANALGESIC EFFECT
     Route: 048
     Dates: start: 20020801
  2. VIOXX [Suspect]
     Route: 048
     Dates: start: 20020801

REACTIONS (8)
  - ADHESION [None]
  - BRADYCARDIA [None]
  - CHEST PAIN [None]
  - HEART RATE IRREGULAR [None]
  - HYPERTROPHY [None]
  - LIMB INJURY [None]
  - MYOCARDIAL INFARCTION [None]
  - ROTATOR CUFF SYNDROME [None]
